FAERS Safety Report 7159913-2 (Version None)
Quarter: 2010Q4

REPORT INFORMATION
  Report Type: 
  Country: None (occurrence: None)
  Receive Date: 20101214
  Receipt Date: 20101207
  Transmission Date: 20110411
  Serious: Yes (Other)
  Sender: FDA-Public Use
  Company Number: US-US-EMD SERONO, INC.-7031416

PATIENT
  Sex: Female

DRUGS (2)
  1. REBIF [Suspect]
     Indication: PRODUCT USED FOR UNKNOWN INDICATION
     Route: 058
     Dates: start: 20070329, end: 20101101
  2. ADVIL [Concomitant]
     Indication: PREMEDICATION

REACTIONS (2)
  - BREAST CANCER [None]
  - INJECTION SITE PAIN [None]
